FAERS Safety Report 8832015 (Version 1)
Quarter: 2012Q4

REPORT INFORMATION
  Report Type: Report from Study
  Country: CA (occurrence: CA)
  Receive Date: 20121009
  Receipt Date: 20121009
  Transmission Date: 20130627
  Serious: Yes (Other)
  Sender: FDA-Public Use
  Company Number: CA-JNJFOC-20121000347

PATIENT
  Age: 32 Year
  Sex: Female
  Weight: 74 kg

DRUGS (3)
  1. REMICADE [Suspect]
     Indication: CROHN^S DISEASE
     Route: 042
     Dates: start: 20090714
  2. IMURAN [Concomitant]
     Route: 065
  3. PARIET [Concomitant]
     Dosage: 2 tabs
     Route: 065

REACTIONS (2)
  - Migraine [Unknown]
  - Visual field defect [Unknown]
